FAERS Safety Report 22645781 (Version 1)
Quarter: 2023Q2

REPORT INFORMATION
  Report Type: Spontaneous
  Country: BR (occurrence: BR)
  Receive Date: 20230627
  Receipt Date: 20230627
  Transmission Date: 20230722
  Serious: Yes (Other)
  Sender: FDA-Public Use
  Company Number: BR-DSJP-DSE-2023-125631

PATIENT

DRUGS (1)
  1. ENHERTU [Suspect]
     Active Substance: FAM-TRASTUZUMAB DERUXTECAN-NXKI
     Indication: Breast cancer
     Dosage: UNK
     Route: 065

REACTIONS (24)
  - Platelet count decreased [Unknown]
  - Platelet count decreased [Unknown]
  - Platelet count decreased [Unknown]
  - Platelet count decreased [Unknown]
  - Platelet count decreased [Unknown]
  - Ascites [Unknown]
  - Platelet count decreased [Unknown]
  - Platelet count decreased [Unknown]
  - Alopecia [Unknown]
  - Alopecia [Unknown]
  - Anaemia [Unknown]
  - Dry skin [Unknown]
  - Dry skin [Unknown]
  - Dry skin [Unknown]
  - Stomatitis [Unknown]
  - Fatigue [Recovered/Resolved]
  - Fatigue [Recovered/Resolved]
  - Fatigue [Recovered/Resolved]
  - Fatigue [Recovered/Resolved]
  - Fatigue [Not Recovered/Not Resolved]
  - Fatigue [Recovered/Resolved]
  - Fatigue [Not Recovered/Not Resolved]
  - Muscular weakness [Unknown]
  - Decreased appetite [Unknown]
